FAERS Safety Report 6027097-X (Version None)
Quarter: 2009Q1

REPORT INFORMATION
  Report Type: 
  Country: None (occurrence: None)
  Receive Date: 20090105
  Receipt Date: 20081229
  Transmission Date: 20090719
  Serious: Yes (Death, Hospitalization)
  Sender: FDA-Public Use
  Company Number: PHHO2007MX07846

PATIENT
  Sex: Female

DRUGS (2)
  1. TEGRETOL [Suspect]
     Indication: EPILEPSY
     Dosage: 3 TABLETS (400MG) PER DAY
     Route: 048
     Dates: start: 20050101, end: 20070802
  2. ASPIRIN [Concomitant]
     Indication: COAGULOPATHY
     Dosage: 1 DF, QD
     Dates: start: 20060101

REACTIONS (5)
  - CARDIAC ARREST [None]
  - CEREBRAL INFARCTION [None]
  - CONVULSION [None]
  - DYSARTHRIA [None]
  - GAIT DISTURBANCE [None]
